FAERS Safety Report 9097030 (Version 1)
Quarter: 2013Q1

REPORT INFORMATION
  Report Type: Spontaneous
  Country: None (occurrence: None)
  Receive Date: 20130123
  Receipt Date: 20130123
  Transmission Date: 20140127
  Serious: No
  Sender: FDA-Public Use
  Company Number: B0861077A

PATIENT
  Sex: 0

DRUGS (2)
  1. LAPATINIB [Suspect]
     Indication: GLIOMA
     Route: 048
  2. TEMOZOLOMIDE [Suspect]
     Indication: GLIOMA
     Route: 048

REACTIONS (4)
  - Neutropenia [None]
  - Leukopenia [None]
  - Neoplasm progression [None]
  - Glioma [None]
